FAERS Safety Report 6913469-5 (Version None)
Quarter: 2010Q3

REPORT INFORMATION
  Report Type: 
  Country: None (occurrence: None)
  Receive Date: 20100803
  Receipt Date: 20100722
  Transmission Date: 20110219
  Serious: Yes (Other)
  Sender: FDA-Public Use
  Company Number: 015995

PATIENT
  Sex: Male
  Weight: 70 kg

DRUGS (2)
  1. KEPPRA [Suspect]
     Dosage: (750 MG, SINGLE DOSE STRENGTH: 250 MG. ORAL)
     Route: 048
  2. LEVODOPA (MADOPAR) [Suspect]
     Dosage: (625 MG, INCREASING THE DOSE BY 250 MG ORAL)
     Route: 048

REACTIONS (2)
  - APATHY [None]
  - HYPOTENSION [None]
